FAERS Safety Report 17911142 (Version 2)
Quarter: 2020Q2

REPORT INFORMATION
  Report Type: Spontaneous
  Country: US (occurrence: US)
  Receive Date: 20200617
  Receipt Date: 20200617
  Transmission Date: 20200714
  Serious: No
  Sender: FDA-Public Use
  Company Number: None

PATIENT
  Age: 46 Year
  Sex: Female
  Weight: 142 kg

DRUGS (2)
  1. TETRACYCLINE 250 MG CAPSULE [Suspect]
     Active Substance: TETRACYCLINE HYDROCHLORIDE
     Indication: GASTROINTESTINAL DISORDER
     Dosage: ?          QUANTITY:42 TABLET(S);?
     Route: 048
  2. TETRACYCLINE HCI CAPSULES250 [Suspect]
     Active Substance: TETRACYCLINE HYDROCHLORIDE
     Indication: GASTROINTESTINAL DISORDER
     Dosage: ?          QUANTITY:56 CAPSULE(S);?
     Route: 048

REACTIONS (5)
  - Hyperhidrosis [None]
  - Asthenia [None]
  - Headache [None]
  - Drug ineffective [None]
  - Vomiting [None]

NARRATIVE: CASE EVENT DATE: 20200111
